FAERS Safety Report 8207057-0 (Version None)
Quarter: 2012Q1

REPORT INFORMATION
  Report Type: 
  Country: None (occurrence: None)
  Receive Date: 20120314
  Receipt Date: 20120305
  Transmission Date: 20120608
  Serious: Yes (Other)
  Sender: FDA-Public Use
  Company Number: US-BAYER-2011-107542

PATIENT
  Age: 23 Year
  Sex: Female

DRUGS (15)
  1. SULFAMETHOXAZOLE [Concomitant]
  2. CLONIDINE [Concomitant]
  3. YASMIN [Suspect]
     Dosage: UNK
     Dates: start: 20060701
  4. ACETAMINOPHEN AND HYDROCODONE BITARTRATE [Concomitant]
  5. YAZ [Suspect]
     Dosage: UNK
     Dates: start: 20070601
  6. YASMIN [Suspect]
     Dosage: UNK
     Dates: start: 20070401, end: 20070601
  7. TOBRAMYCIN [Concomitant]
  8. YAZ [Suspect]
     Dosage: UNK
     Dates: start: 20090801
  9. LISINOPRIL [Concomitant]
     Dosage: UNK
     Dates: start: 20061108, end: 20080401
  10. PROPRANOLOL [Concomitant]
     Dosage: UNK
     Dates: start: 20071201, end: 20080301
  11. YAZ [Suspect]
     Dosage: UNK
     Dates: start: 20070601, end: 20090201
  12. HYDROCHLOROTHIAZIDE [Concomitant]
     Dosage: UNK
     Dates: start: 20061001
  13. HYDROCODONE BITARTRATE AND ACETAMINOPHEN [Concomitant]
  14. ZOFRAN [Concomitant]
  15. ERYTHROMYCIN [Concomitant]

REACTIONS (6)
  - EMOTIONAL DISTRESS [None]
  - CEREBROVASCULAR ACCIDENT [None]
  - INJURY [None]
  - VISUAL IMPAIRMENT [None]
  - PAIN [None]
  - BLINDNESS [None]
